FAERS Safety Report 9131007 (Version 1)
Quarter: 2013Q1

REPORT INFORMATION
  Report Type: Spontaneous
  Country: CH (occurrence: CH)
  Receive Date: 20130301
  Receipt Date: 20130301
  Transmission Date: 20140127
  Serious: Yes (Hospitalization)
  Sender: FDA-Public Use
  Company Number: CH-PFIZER INC-2013072869

PATIENT
  Age: 87 Year
  Sex: Female

DRUGS (12)
  1. ALDACTONE [Suspect]
     Indication: MYOCARDIAL ISCHAEMIA
     Dosage: 12.5 MG, 2X/DAY
     Route: 048
  2. FLUOXETINE HCL [Suspect]
     Dosage: 20 MG, 1X/DAY
     Route: 048
  3. XARELTO [Suspect]
     Indication: ATRIAL FIBRILLATION
     Dosage: 20 MG, 1X/DAY
     Route: 048
     Dates: end: 20130131
  4. XARELTO [Suspect]
     Indication: ATRIAL FLUTTER
  5. PREDNISON [Suspect]
     Indication: SYSTEMIC LUPUS ERYTHEMATOSUS
     Dosage: 5 MG, 1X/DAY
     Route: 048
  6. FOSAMAX [Suspect]
     Indication: OSTEOPOROSIS
     Dosage: 70 MG, WEEKLY
     Route: 048
  7. TORASEMIDE [Suspect]
     Dosage: 5 MG, 1X/DAY
     Route: 048
  8. RENITEN [Concomitant]
     Indication: ESSENTIAL HYPERTENSION
     Dosage: 10 MG, 2X/DAY
     Route: 048
  9. TENORMIN [Concomitant]
     Indication: MYOCARDIAL ISCHAEMIA
     Dosage: 25 MG, 1X/DAY
     Route: 048
  10. ANTRA [Concomitant]
     Dosage: 20 MG, 1X/DAY
     Route: 048
     Dates: end: 20130131
  11. CORVATON ^AVENTIS PHARMA^ [Concomitant]
     Indication: MYOCARDIAL ISCHAEMIA
     Dosage: 8 MG, 2X/DAY
     Route: 048
  12. GYNO-TARDYFERON [Concomitant]
     Dosage: 1 DF, 1X/DAY
     Route: 048
     Dates: end: 20130131

REACTIONS (3)
  - Melaena [Unknown]
  - Gastrointestinal haemorrhage [Unknown]
  - Fall [Unknown]
